FAERS Safety Report 20878176 (Version 2)
Quarter: 2022Q3

REPORT INFORMATION
  Report Type: Report from Study
  Country: US (occurrence: US)
  Receive Date: 20220526
  Receipt Date: 20220711
  Transmission Date: 20221027
  Serious: Yes (Hospitalization)
  Sender: FDA-Public Use
  Company Number: US-KARYOPHARM-2022KPT000576

PATIENT
  Age: 74 Year
  Sex: Female
  Weight: 67.6 kg

DRUGS (14)
  1. SELINEXOR [Suspect]
     Active Substance: SELINEXOR
     Indication: Plasma cell myeloma
     Dosage: 60 MG, DAYS 1, 8, AND 15 OF A 28-DAY CYCLE
     Route: 048
     Dates: start: 20220420
  2. POMALIDOMIDE [Suspect]
     Active Substance: POMALIDOMIDE
     Indication: Plasma cell myeloma
     Dosage: 4 MG, ON DAYS 1-21 OF A 28-DAY CYCLE
     Route: 048
     Dates: start: 20220420
  3. DEXAMETHASONE [Concomitant]
     Active Substance: DEXAMETHASONE
     Indication: Plasma cell myeloma
     Dosage: 40 MG, WEEKLY
     Dates: start: 20220420
  4. VALACYCLOVIR HYDROCHLORIDE [Concomitant]
     Active Substance: VALACYCLOVIR HYDROCHLORIDE
     Indication: Prophylaxis
     Dosage: 500 MG, QD
     Dates: start: 20220412
  5. OLANZAPINE [Concomitant]
     Active Substance: OLANZAPINE
     Indication: Nausea
     Dosage: 2.5 MG, QD AT BEDTIME OR AN HOUR OF SLEEP
     Dates: start: 20220412
  6. OLANZAPINE [Concomitant]
     Active Substance: OLANZAPINE
     Indication: Vomiting
  7. ONDANSETRON [Concomitant]
     Active Substance: ONDANSETRON
     Indication: Nausea
     Dosage: 8 MG, Q8H
     Dates: start: 20220412
  8. ONDANSETRON [Concomitant]
     Active Substance: ONDANSETRON
     Indication: Vomiting
  9. FLUDEOXYGLUCOSE F-18 [Concomitant]
     Active Substance: FLUDEOXYGLUCOSE F-18
     Indication: Scan
     Dosage: 12.11 CELLS, SINGLE
     Dates: start: 20220412
  10. POTASSIUM CHLORIDE [Concomitant]
     Active Substance: POTASSIUM CHLORIDE
     Indication: Blood potassium decreased
     Dosage: 40 MEQ, SINGLE
     Dates: start: 20220420, end: 20220420
  11. APREPITANT [Concomitant]
     Active Substance: APREPITANT
     Indication: Premedication
     Dosage: 130 MG, SINGLE
     Dates: start: 20220420
  12. TRAMADOL [Concomitant]
     Active Substance: TRAMADOL
     Indication: Pain
     Dosage: 50 MG, SINGLE
     Dates: start: 20200504, end: 20200504
  13. ZOLEDRONIC ACID [Concomitant]
     Active Substance: ZOLEDRONIC ACID
     Indication: Supplementation therapy
     Dosage: 4 UNK, SINGLE
     Dates: start: 20200504, end: 20200504
  14. OXYCODONE [Concomitant]
     Active Substance: OXYCODONE
     Indication: Arthralgia
     Dosage: 5 MG, Q6H
     Dates: start: 20220511, end: 20220516

REACTIONS (1)
  - Fall [Recovered/Resolved with Sequelae]

NARRATIVE: CASE EVENT DATE: 20220515
